FAERS Safety Report 6344019-2 (Version None)
Quarter: 2009Q3

REPORT INFORMATION
  Report Type: 
  Country: None (occurrence: None)
  Receive Date: 20090908
  Receipt Date: 20090903
  Transmission Date: 20100115
  Serious: Yes (Death, Hospitalization)
  Sender: FDA-Public Use
  Company Number: DE-PFIZER INC-2009263847

PATIENT
  Age: 66 Year

DRUGS (10)
  1. *ERLOTINIB [Suspect]
     Indication: NON-SMALL CELL LUNG CANCER
     Dosage: 100 MG, 1X/DAY
     Route: 048
     Dates: start: 20080614
  2. BLINDED *NO SUBJECT DRUG [Suspect]
     Indication: NON-SMALL CELL LUNG CANCER
     Dosage: 25 MG, 1X/DAY
     Route: 048
     Dates: start: 20080614
  3. BLINDED *PLACEBO [Suspect]
     Indication: NON-SMALL CELL LUNG CANCER
     Dosage: 25 MG, 1X/DAY
     Route: 048
     Dates: start: 20080614
  4. BLINDED SUNITINIB MALATE [Suspect]
     Indication: NON-SMALL CELL LUNG CANCER
     Dosage: 25 MG, 1X/DAY
     Route: 048
     Dates: start: 20080614
  5. AZOPT [Concomitant]
     Dosage: UNK
     Route: 048
     Dates: start: 20080101
  6. OMEPRAZOL [Concomitant]
     Dosage: UNK
     Route: 048
     Dates: start: 20070901
  7. COLECALCIFEROL [Concomitant]
     Dosage: UNK
     Route: 048
     Dates: start: 20070901
  8. RAMIPRIL [Concomitant]
     Dosage: UNK
     Route: 048
     Dates: start: 20030101
  9. AMLODIPINE [Concomitant]
     Dosage: UNK
     Route: 048
     Dates: start: 20010101
  10. PRAVASTATIN [Concomitant]
     Dosage: UNK
     Route: 048
     Dates: start: 20040101

REACTIONS (3)
  - GENERAL PHYSICAL HEALTH DETERIORATION [None]
  - HAEMATEMESIS [None]
  - RESPIRATORY FAILURE [None]
